FAERS Safety Report 8341479-2 (Version None)
Quarter: 2012Q2

REPORT INFORMATION
  Report Type: 
  Country: None (occurrence: None)
  Receive Date: 20120507
  Receipt Date: 20120501
  Transmission Date: 20120825
  Serious: Yes (Death)
  Sender: FDA-Public Use
  Company Number: JP-ELI_LILLY_AND_COMPANY-JP201205000385

PATIENT

DRUGS (2)
  1. TS 1 [Concomitant]
     Indication: ADENOCARCINOMA PANCREAS
     Dosage: 80 MG/M2, UNK
     Route: 048
  2. GEMZAR [Suspect]
     Indication: ADENOCARCINOMA PANCREAS
     Dosage: 1000 MG/M2, UNK
     Route: 042

REACTIONS (1)
  - DEATH [None]
